FAERS Safety Report 4423209-X (Version None)
Quarter: 2004Q3

REPORT INFORMATION
  Report Type: 
  Country: None (occurrence: None)
  Receive Date: 20040713
  Receipt Date: 20040109
  Transmission Date: 20050211
  Serious: No
  Sender: FDA-Public Use
  Company Number: PHEH2003US09149

PATIENT
  Age: 47 Year
  Sex: Female

DRUGS (5)
  1. ELIDEL [Suspect]
     Indication: ECZEMA
     Dosage: TOPICAL
     Route: 061
     Dates: start: 20031101, end: 20031201
  2. PROZAC [Concomitant]
  3. XANAX [Concomitant]
  4. ZYRTEC [Concomitant]
  5. NEURONTIN [Concomitant]

REACTIONS (5)
  - APPLICATION SITE ANAESTHESIA [None]
  - APPLICATION SITE PAIN [None]
  - DYSPHAGIA [None]
  - HOARSENESS [None]
  - PHARYNGOLARYNGEAL PAIN [None]
